FAERS Safety Report 8888042 (Version 2)
Quarter: 2012Q4

REPORT INFORMATION
  Report Type: 
  Country: US (occurrence: US)
  Receive Date: 20121106
  Receipt Date: 20121115
  Transmission Date: 20130627
  Serious: Yes (Other)
  Sender: FDA-Public Use
  Company Number: US-PFIZER INC-2012276538

PATIENT
  Sex: Male

DRUGS (1)
  1. LYRICA [Suspect]
     Indication: NEUROPATHIC PAIN
     Dosage: 300 mg, 2x/day
     Dates: start: 2009

REACTIONS (8)
  - Cognitive disorder [Unknown]
  - Drug ineffective [Unknown]
  - Weight increased [Unknown]
  - Irritability [Unknown]
  - Somnolence [Unknown]
  - Feeling abnormal [Unknown]
  - Euphoric mood [Unknown]
  - Dizziness [Unknown]
